FAERS Safety Report 22128809 (Version 1)
Quarter: 2023Q1

REPORT INFORMATION
  Report Type: Spontaneous
  Country: US (occurrence: US)
  Receive Date: 20230323
  Receipt Date: 20230323
  Transmission Date: 20230418
  Serious: Yes (Death, Hospitalization)
  Sender: FDA-Public Use
  Company Number: US-STRIDES ARCOLAB LIMITED-2023SP004258

PATIENT
  Age: 47 Year
  Sex: Female

DRUGS (13)
  1. HYDROCORTISONE [Suspect]
     Active Substance: HYDROCORTISONE
     Indication: Acute myocardial infarction
     Dosage: 100 MILLIGRAM
     Route: 065
  2. HYDROCORTISONE [Suspect]
     Active Substance: HYDROCORTISONE
     Indication: Kounis syndrome
  3. DIPHENHYDRAMINE [Suspect]
     Active Substance: DIPHENHYDRAMINE
     Indication: Acute myocardial infarction
     Dosage: 50 MILLIGRAM
     Route: 042
  4. DIPHENHYDRAMINE [Suspect]
     Active Substance: DIPHENHYDRAMINE
     Indication: Kounis syndrome
  5. EPINEPHRINE [Suspect]
     Active Substance: EPINEPHRINE
     Indication: Acute myocardial infarction
     Dosage: UNK
     Route: 065
  6. EPINEPHRINE [Suspect]
     Active Substance: EPINEPHRINE
     Indication: Kounis syndrome
  7. ZOTAROLIMUS [Suspect]
     Active Substance: ZOTAROLIMUS
     Indication: Acute myocardial infarction
     Dosage: UNK,2 DRUG-ELUTING STENTS
     Route: 065
  8. ZOTAROLIMUS [Suspect]
     Active Substance: ZOTAROLIMUS
     Indication: Kounis syndrome
  9. NITROGLYCERIN [Suspect]
     Active Substance: NITROGLYCERIN
     Indication: Acute myocardial infarction
     Dosage: UNK
     Route: 022
  10. NITROGLYCERIN [Suspect]
     Active Substance: NITROGLYCERIN
     Indication: Kounis syndrome
  11. PACLITAXEL [Concomitant]
     Active Substance: PACLITAXEL
     Indication: Triple negative breast cancer
     Dosage: UNK
     Route: 065
  12. PACLITAXEL [Concomitant]
     Active Substance: PACLITAXEL
     Dosage: UNK, INFUSION
     Route: 065
  13. TECHNETIUM TC-99M ARCITUMOMAB [Concomitant]
     Active Substance: TECHNETIUM TC-99M ARCITUMOMAB
     Indication: Scan myocardial perfusion
     Dosage: UNK
     Route: 065

REACTIONS (1)
  - Drug ineffective [Fatal]
